FAERS Safety Report 13064803 (Version 2)
Quarter: 2017Q1

REPORT INFORMATION
  Report Type: Spontaneous
  Country: US (occurrence: US)
  Receive Date: 20161227
  Receipt Date: 20170105
  Transmission Date: 20170428
  Serious: Yes (Hospitalization, Disabling, Other)
  Sender: FDA-Public Use
  Company Number: US-JNJFOC-20161220157

PATIENT

DRUGS (1)
  1. INVOKANA [Suspect]
     Active Substance: CANAGLIFLOZIN
     Indication: DIABETES MELLITUS
     Route: 048
     Dates: start: 20141204

REACTIONS (3)
  - Metabolic acidosis [Unknown]
  - Cerebrovascular accident [Unknown]
  - Gangrene [Unknown]

NARRATIVE: CASE EVENT DATE: 20160523
